FAERS Safety Report 6299632-8 (Version None)
Quarter: 2009Q3

REPORT INFORMATION
  Report Type: 
  Country: None (occurrence: None)
  Receive Date: 20090803
  Receipt Date: 20090724
  Transmission Date: 20100115
  Serious: Yes (Death, Hospitalization, Other)
  Sender: FDA-Public Use
  Company Number: SPV1-2009-01548

PATIENT
  Age: 22 Year
  Sex: Male

DRUGS (1)
  1. VYANSE           (LIDESAMFETAMINE DIMESYLATE) CAPSULE [Suspect]
     Indication: DRUG USE FOR UNKNOWN INDICATION
     Dates: start: 20070101, end: 20070101

REACTIONS (5)
  - BRAIN DEATH [None]
  - COMA [None]
  - CONVULSION [None]
  - HAEMORRHAGIC STROKE [None]
  - OFF LABEL USE [None]
